FAERS Safety Report 4516225-0 (Version None)
Quarter: 2004Q4

REPORT INFORMATION
  Report Type: 
  Country: None (occurrence: None)
  Receive Date: 20041201
  Receipt Date: 20041201
  Transmission Date: 20050328
  Serious: Yes (Disabling, Other)
  Sender: FDA-Public Use
  Company Number: None

PATIENT
  Age: 32 Year
  Sex: Female
  Weight: 58.9676 kg

DRUGS (2)
  1. SYNTHROID [Suspect]
     Indication: HYPOTHYROIDISM
     Dosage: 1      PER DAY   ORAL
     Route: 048
     Dates: start: 19940801, end: 20020101
  2. SYNTHROID [Suspect]
     Indication: HYPOTHYROIDISM
     Dosage: 1       PER DAY   ORAL
     Route: 048
     Dates: start: 20020102, end: 20040313

REACTIONS (9)
  - ACTIVITIES OF DAILY LIVING IMPAIRED [None]
  - DISTURBANCE IN SOCIAL BEHAVIOUR [None]
  - FEELING ABNORMAL [None]
  - FEELING OF DESPAIR [None]
  - HEPATITIS C [None]
  - IMPAIRED WORK ABILITY [None]
  - PERSONALITY CHANGE [None]
  - REFUSAL OF TREATMENT BY PATIENT [None]
  - THERAPEUTIC AGENT TOXICITY [None]
